FAERS Safety Report 8436469-5 (Version None)
Quarter: 2012Q2

REPORT INFORMATION
  Report Type: 
  Country: None (occurrence: None)
  Receive Date: 20120614
  Receipt Date: 20120612
  Transmission Date: 20120825
  Serious: Yes (Other)
  Sender: FDA-Public Use
  Company Number: US-BAYER-2011-113579

PATIENT
  Age: 64 Year
  Sex: Female

DRUGS (2)
  1. BETASERON [Suspect]
     Dosage: 0.25 MG, QOD
     Route: 058
     Dates: start: 20081201
  2. BETASERON [Suspect]
     Indication: MULTIPLE SCLEROSIS
     Dosage: 0.25 MG, QOD
     Route: 058
     Dates: start: 20081201

REACTIONS (4)
  - BONE CANCER METASTATIC [None]
  - METASTATIC LYMPHOMA [None]
  - DEPRESSION [None]
  - LUNG CARCINOMA CELL TYPE UNSPECIFIED STAGE IV [None]
